FAERS Safety Report 6877080-7 (Version None)
Quarter: 2010Q3

REPORT INFORMATION
  Report Type: 
  Country: None (occurrence: None)
  Receive Date: 20100727
  Receipt Date: 20100727
  Transmission Date: 20110219
  Serious: Yes (Hospitalization)
  Sender: FDA-Public Use
  Company Number: None

PATIENT
  Age: 52 Year
  Sex: Female
  Weight: 68.9467 kg

DRUGS (1)
  1. BUPRENORPHINE [Suspect]
     Indication: DRUG WITHDRAWAL SYNDROME
     Dosage: 1 MG -TAPERED FROM 8 MG- DAILY SL
     Route: 060
     Dates: start: 20100603, end: 20100720

REACTIONS (3)
  - HYPOTENSION [None]
  - RIB FRACTURE [None]
  - SYNCOPE [None]
